FAERS Safety Report 9724550 (Version 1)
Quarter: 2013Q4

REPORT INFORMATION
  Report Type: Spontaneous
  Country: US (occurrence: US)
  Receive Date: 20131202
  Receipt Date: 20131202
  Transmission Date: 20140711
  Serious: No
  Sender: FDA-Public Use
  Company Number: US-AMGEN-USASP2013081232

PATIENT
  Age: 61 Year
  Sex: Male

DRUGS (2)
  1. ENBREL [Suspect]
     Indication: PSORIATIC ARTHROPATHY
     Dosage: UNK UNK, 2 TIMES/WK
     Route: 065
     Dates: start: 20020501
  2. ENBREL [Suspect]
     Indication: PSORIASIS

REACTIONS (6)
  - Arthralgia [Not Recovered/Not Resolved]
  - Malaise [Not Recovered/Not Resolved]
  - Condition aggravated [Unknown]
  - Injection site pain [Recovered/Resolved]
  - Nasopharyngitis [Not Recovered/Not Resolved]
  - Psoriasis [Not Recovered/Not Resolved]
